FAERS Safety Report 10655017 (Version 1)
Quarter: 2014Q4

REPORT INFORMATION
  Report Type: Spontaneous
  Country: JP (occurrence: JP)
  Receive Date: 20141216
  Receipt Date: 20141216
  Transmission Date: 20150529
  Serious: Yes (Other)
  Sender: FDA-Public Use
  Company Number: JP-PFIZER INC-2014343895

PATIENT
  Age: 65 Year
  Sex: Male

DRUGS (1)
  1. FLUCONAZOLE. [Suspect]
     Active Substance: FLUCONAZOLE
     Indication: CRYPTOCOCCOSIS
     Dosage: 4 DF, 1X/DAY
     Route: 048

REACTIONS (8)
  - Renal failure [Recovering/Resolving]
  - Discomfort [Unknown]
  - Chapped lips [Not Recovered/Not Resolved]
  - Oral discomfort [Not Recovered/Not Resolved]
  - Myalgia [Not Recovered/Not Resolved]
  - Drug eruption [Unknown]
  - Arthralgia [Not Recovered/Not Resolved]
  - Mucosal haemorrhage [Recovering/Resolving]
